FAERS Safety Report 11755318 (Version 1)
Quarter: 2015Q4

REPORT INFORMATION
  Report Type: Report from Study
  Country: MX (occurrence: MX)
  Receive Date: 20151119
  Receipt Date: 20151119
  Transmission Date: 20160304
  Serious: Yes (Hospitalization)
  Sender: FDA-Public Use
  Company Number: MX-ABBVIE-15K-107-1500424-00

PATIENT
  Age: 79 Year
  Sex: Female
  Weight: 67 kg

DRUGS (6)
  1. HUMIRA [Suspect]
     Active Substance: ADALIMUMAB
     Indication: RHEUMATOID ARTHRITIS
     Route: 058
     Dates: start: 2011
  2. TEMERIT [Concomitant]
     Active Substance: NEBIVOLOL
     Indication: ARRHYTHMIA
     Route: 048
     Dates: start: 2012
  3. CLONAZEPAM. [Concomitant]
     Active Substance: CLONAZEPAM
     Indication: INSOMNIA
     Dosage: HALF TABLET
     Route: 048
     Dates: start: 2013
  4. DOLAREN [Concomitant]
     Indication: PAIN
     Route: 048
     Dates: start: 20130313
  5. TAFIL [Concomitant]
     Active Substance: ALPRAZOLAM
     Indication: INSOMNIA
     Dosage: HALF TABLET
     Route: 048
     Dates: start: 201303
  6. ACLASTA [Concomitant]
     Active Substance: ZOLEDRONIC ACID
     Indication: OSTEOPOROSIS
     Route: 042

REACTIONS (6)
  - Fatigue [Recovering/Resolving]
  - Hyperglycaemia [Recovering/Resolving]
  - Somnolence [Recovering/Resolving]
  - Vertigo [Recovering/Resolving]
  - Headache [Recovering/Resolving]
  - Decreased appetite [Recovering/Resolving]

NARRATIVE: CASE EVENT DATE: 20151108
